FAERS Safety Report 11398838 (Version 1)
Quarter: 2015Q3

REPORT INFORMATION
  Report Type: Spontaneous
  Country: US (occurrence: None)
  Receive Date: 20150818
  Receipt Date: 20150818
  Transmission Date: 20151125
  Serious: Yes (Other)
  Sender: FDA-Public Use
  Company Number: None

PATIENT
  Age: 33 Year
  Sex: Male
  Weight: 94.8 kg

DRUGS (1)
  1. MIRALAX [Suspect]
     Active Substance: POLYETHYLENE GLYCOL 3350
     Indication: CONSTIPATION
     Dosage: 2 TBSP
     Route: 048
     Dates: start: 20140801, end: 20150815

REACTIONS (4)
  - Schizophreniform disorder [None]
  - Dementia [None]
  - Autism [None]
  - Depression [None]

NARRATIVE: CASE EVENT DATE: 20150815
